FAERS Safety Report 7020849-9 (Version None)
Quarter: 2010Q3

REPORT INFORMATION
  Report Type: 
  Country: None (occurrence: None)
  Receive Date: 20100929
  Receipt Date: 20100917
  Transmission Date: 20110219
  Serious: Yes (Other)
  Sender: FDA-Public Use
  Company Number: CO-WYE-H17618010

PATIENT
  Sex: Male

DRUGS (6)
  1. RAPAMUNE [Suspect]
     Indication: PROPHYLAXIS AGAINST TRANSPLANT REJECTION
     Route: 048
     Dates: start: 20081211
  2. OMEPRAZOLE [Concomitant]
  3. LOVASTATIN [Concomitant]
  4. PREDNISOLONE [Concomitant]
  5. MINOXIDIL [Concomitant]
  6. ENALAPRIL MALEATE [Concomitant]

REACTIONS (5)
  - ACNE [None]
  - CATARACT [None]
  - CHOLELITHIASIS [None]
  - HYPERTENSION [None]
  - TINEA PEDIS [None]
